FAERS Safety Report 24993308 (Version 1)
Quarter: 2025Q1

REPORT INFORMATION
  Report Type: Report from Study
  Country: CO (occurrence: CO)
  Receive Date: 20250221
  Receipt Date: 20250221
  Transmission Date: 20250408
  Serious: Yes (Death)
  Sender: ABBVIE
  Company Number: CO-JNJFOC-20250243184

PATIENT
  Age: 68 Year
  Sex: Male
  Weight: 53 kg

DRUGS (1)
  1. IMBRUVICA [Suspect]
     Active Substance: IBRUTINIB
     Indication: Mantle cell lymphoma
     Route: 048
     Dates: start: 20241224, end: 20250109

REACTIONS (1)
  - Death [Fatal]
